FAERS Safety Report 18546276 (Version 1)
Quarter: 2020Q4

REPORT INFORMATION
  Report Type: Spontaneous
  Country: US (occurrence: US)
  Receive Date: 20201125
  Receipt Date: 20201125
  Transmission Date: 20210114
  Serious: No
  Sender: FDA-Public Use
  Company Number: US-PFIZER INC-2020463879

PATIENT
  Age: 58 Year
  Sex: Female

DRUGS (1)
  1. CORTEF [Suspect]
     Active Substance: HYDROCORTISONE
     Dosage: UNK

REACTIONS (1)
  - Gastrooesophageal reflux disease [Unknown]
